FAERS Safety Report 11887551 (Version 1)
Quarter: 2016Q1

REPORT INFORMATION
  Report Type: Report from Study
  Country: PK (occurrence: PK)
  Receive Date: 20160105
  Receipt Date: 20160105
  Transmission Date: 20160526
  Serious: Yes (Other)
  Sender: FDA-Public Use
  Company Number: PHHY2015PK172064

PATIENT
  Age: 90 Year
  Sex: Female

DRUGS (2)
  1. EXELON PATCH [Suspect]
     Active Substance: RIVASTIGMINE
     Dosage: 9.5 MG (10CM2 PATCH), QD
     Route: 062
     Dates: start: 20150902
  2. EXELON PATCH [Suspect]
     Active Substance: RIVASTIGMINE
     Indication: COMA
     Dosage: 4.6 MG (5 CM2 PATCH), QD
     Route: 062
     Dates: start: 20150801

REACTIONS (3)
  - Off label use [Unknown]
  - Haemorrhagic stroke [Recovering/Resolving]
  - Coma [Recovering/Resolving]

NARRATIVE: CASE EVENT DATE: 20150801
